FAERS Safety Report 8927255 (Version 2)
Quarter: 2013Q2

REPORT INFORMATION
  Report Type: Spontaneous
  Country: JP (occurrence: JP)
  Receive Date: 20121127
  Receipt Date: 20130503
  Transmission Date: 20140414
  Serious: Yes (Life-Threatening)
  Sender: FDA-Public Use
  Company Number: JP-JNJFOC-20121112705

PATIENT
  Age: 6 Decade
  Sex: Male

DRUGS (2)
  1. INTELENCE [Suspect]
     Indication: PRODUCT USED FOR UNKNOWN INDICATION
     Route: 048
     Dates: start: 20121011, end: 201211
  2. ISENTRESS [Suspect]
     Indication: PRODUCT USED FOR UNKNOWN INDICATION
     Route: 048
     Dates: start: 20121011, end: 201211

REACTIONS (5)
  - Balance disorder [Recovering/Resolving]
  - Hypoaesthesia [Recovering/Resolving]
  - Gait disturbance [Recovering/Resolving]
  - Weight decreased [Recovering/Resolving]
  - Decreased appetite [Unknown]
